FAERS Safety Report 24602689 (Version 1)
Quarter: 2024Q4

REPORT INFORMATION
  Report Type: Spontaneous
  Country: US (occurrence: None)
  Receive Date: 20241108
  Receipt Date: 20241108
  Transmission Date: 20250115
  Serious: Yes (Other)
  Sender: Public
  Company Number: None

PATIENT
  Age: 15 Year
  Sex: Male
  Weight: 43.2 kg

DRUGS (5)
  1. JORNAY PM EXTENDED-RELEASE [Suspect]
     Active Substance: METHYLPHENIDATE HYDROCHLORIDE
  2. INTUNIV [Concomitant]
     Active Substance: GUANFACINE HYDROCHLORIDE
  3. DEPAKOTE [Concomitant]
  4. RISPERIDONE [Concomitant]
  5. SENOKOT [Concomitant]
     Active Substance: SENNOSIDES

REACTIONS (4)
  - Hallucination [None]
  - Hallucination, auditory [None]
  - Fear [None]
  - Therapy cessation [None]

NARRATIVE: CASE EVENT DATE: 20241022
